FAERS Safety Report 5633836-X (Version None)
Quarter: 2008Q1

REPORT INFORMATION
  Report Type: 
  Country: None (occurrence: None)
  Receive Date: 20080219
  Receipt Date: 20080201
  Transmission Date: 20080703
  Serious: Yes (Other)
  Sender: FDA-Public Use
  Company Number: 2007EU002628

PATIENT
  Age: 19 Year
  Sex: Female

DRUGS (3)
  1. PROTOPIC [Suspect]
     Indication: DERMATITIS ATOPIC
     Dosage: 0.1 %, BID, TOPICAL
     Route: 061
     Dates: start: 20060401
  2. DIPROSONE [Concomitant]
  3. DEXERYL (WHITE SOFT PARAFFIN, PARAFFIN, LIQUID) [Concomitant]

REACTIONS (1)
  - HODGKIN'S DISEASE [None]
